FAERS Safety Report 8979086 (Version 3)
Quarter: 2013Q3

REPORT INFORMATION
  Report Type: Report from Study
  Country: JP (occurrence: JP)
  Receive Date: 20121221
  Receipt Date: 20130726
  Transmission Date: 20140515
  Serious: Yes (Hospitalization, Disabling)
  Sender: FDA-Public Use
  Company Number: JP-AMGEN-JPNCT2012082214

PATIENT
  Age: 74 Year
  Sex: Male
  Weight: 59 kg

DRUGS (20)
  1. DARBEPOETIN ALFA [Suspect]
     Indication: NEPHROGENIC ANAEMIA
     Dosage: 60 MUG, UNK
     Route: 058
     Dates: start: 20111216, end: 20120330
  2. DARBEPOETIN ALFA [Suspect]
     Dosage: 60 MUG, Q4WK
     Route: 058
     Dates: start: 20120501, end: 20120724
  3. DARBEPOETIN ALFA [Suspect]
     Dosage: 120 MUG, QD
     Route: 058
     Dates: start: 20120807, end: 20120807
  4. DARBEPOETIN ALFA [Suspect]
     Dosage: 120 MUG, QD
     Route: 058
     Dates: start: 20120901, end: 20120901
  5. DARBEPOETIN ALFA [Suspect]
     Dosage: 60 MUG, QD
     Route: 058
     Dates: start: 20121013, end: 20121013
  6. DARBEPOETIN ALFA [Suspect]
     Dosage: 60 MUG, QD
     Route: 058
     Dates: start: 20121026, end: 20121026
  7. DARBEPOETIN ALFA [Suspect]
     Dosage: 60 MUG, QD
     Route: 058
     Dates: start: 20121102, end: 20121102
  8. KAYEXALATE [Suspect]
     Indication: GLOMERULONEPHRITIS CHRONIC
     Dosage: UNK
     Route: 048
  9. OMEPRAL [Concomitant]
     Dosage: UNK
     Route: 048
  10. ALOSITOL [Concomitant]
     Dosage: UNK
     Route: 048
  11. DIOVAN [Concomitant]
     Dosage: UNK
     Route: 048
  12. ATELEC [Concomitant]
     Dosage: UNK
     Route: 048
  13. KREMEZIN [Concomitant]
     Dosage: UNK
     Route: 048
  14. CARDENALIN [Concomitant]
     Dosage: UNK
     Route: 048
  15. HARNAL [Concomitant]
     Dosage: UNK
     Route: 048
  16. PREDNISOLONE [Concomitant]
     Dosage: UNK
     Route: 048
  17. LAXOBERON [Concomitant]
     Dosage: UNK
     Route: 048
  18. SORBITOL [Concomitant]
     Dosage: UNK
     Route: 048
  19. DAIKENTYUTO [Concomitant]
     Dosage: UNK
     Route: 048
  20. PURSENNID [Concomitant]
     Dosage: UNK
     Route: 048

REACTIONS (3)
  - Brain stem infarction [Recovered/Resolved with Sequelae]
  - Myocardial infarction [Recovering/Resolving]
  - Constipation [Recovered/Resolved]
